FAERS Safety Report 26083648 (Version 2)
Quarter: 2025Q4

REPORT INFORMATION
  Report Type: Spontaneous
  Country: IN (occurrence: US)
  Receive Date: 20251124
  Receipt Date: 20251224
  Transmission Date: 20260118
  Serious: No
  Sender: CIPLA
  Company Number: IN-CIPLA LTD.-2025US14514

PATIENT

DRUGS (3)
  1. ALBUTEROL [Suspect]
     Active Substance: ALBUTEROL
     Indication: Product used for unknown indication
     Dosage: 180 MICROGRAM, EVERY 4 TO 6 HOURS (SIX TO SEVEN YEARS AGO)
  2. ALBUTEROL [Suspect]
     Active Substance: ALBUTEROL
     Dosage: 180 MICROGRAM, EVERY 4 TO 6 HOURS
     Dates: start: 202511, end: 202511
  3. ALBUTEROL [Suspect]
     Active Substance: ALBUTEROL
     Dosage: 180 MICROGRAM, EVERY 4 TO 6 HOURS (NEW INHALER)
     Dates: start: 202511, end: 2025

REACTIONS (6)
  - Dyspnoea [Unknown]
  - Cough [Unknown]
  - Tremor [Unknown]
  - Drug dose omission by device [Unknown]
  - Device delivery system issue [Unknown]
  - Product quality issue [Unknown]

NARRATIVE: CASE EVENT DATE: 20251101
